FAERS Safety Report 4748054-7 (Version None)
Quarter: 2005Q3

REPORT INFORMATION
  Report Type: 
  Country: None (occurrence: None)
  Receive Date: 20050818
  Receipt Date: 20050815
  Transmission Date: 20060218
  Serious: Yes (Hospitalization)
  Sender: FDA-Public Use
  Company Number: US-GLAXOSMITHKLINE-A0570228A

PATIENT
  Sex: Male

DRUGS (2)
  1. ARIXTRA [Suspect]
     Indication: PULMONARY EMBOLISM
     Dosage: 7.5MG AS REQUIRED
     Route: 058
     Dates: start: 20050811, end: 20050812
  2. NO CONCURRENT MEDICATION [Concomitant]

REACTIONS (1)
  - HYPERSENSITIVITY [None]
